FAERS Safety Report 9671399 (Version 1)
Quarter: 2013Q4

REPORT INFORMATION
  Report Type: Spontaneous
  Country: US (occurrence: None)
  Receive Date: 20131105
  Receipt Date: 20131105
  Transmission Date: 20140711
  Serious: Yes (Life-Threatening, Disabling, Other)
  Sender: FDA-Public Use
  Company Number: None

PATIENT
  Age: 80 Year
  Sex: Male
  Weight: 95.26 kg

DRUGS (1)
  1. ALBUTEROL SULFATE [Suspect]
     Indication: LUNG DISORDER
     Dosage: 1 VIAL IN NEBULIZER FOUR TIMES DAILY
     Route: 055
     Dates: start: 20130930, end: 20131101

REACTIONS (3)
  - Drug ineffective [None]
  - Dyspnoea [None]
  - Insomnia [None]
